FAERS Safety Report 7363749-7 (Version None)
Quarter: 2011Q1

REPORT INFORMATION
  Report Type: 
  Country: None (occurrence: None)
  Receive Date: 20110321
  Receipt Date: 20110310
  Transmission Date: 20110831
  Serious: Yes (Hospitalization, Other)
  Sender: FDA-Public Use
  Company Number: US-BAYER-2011-010475

PATIENT
  Sex: Female

DRUGS (1)
  1. MIRENA [Suspect]
     Indication: CONTRACEPTION
     Dosage: 20 ?G, CONT
     Route: 015
     Dates: start: 20090601, end: 20101230

REACTIONS (9)
  - DEVICE BREAKAGE [None]
  - COMPLICATION OF DEVICE REMOVAL [None]
  - PROCEDURAL PAIN [None]
  - CHILLS [None]
  - HYPERHIDROSIS [None]
  - DIZZINESS [None]
  - PELVIC PAIN [None]
  - ACNE [None]
  - SYNCOPE [None]
